FAERS Safety Report 4988545-7 (Version None)
Quarter: 2006Q2

REPORT INFORMATION
  Report Type: 
  Country: None (occurrence: None)
  Receive Date: 20060502
  Receipt Date: 20060428
  Transmission Date: 20061013
  Serious: Yes (Other)
  Sender: FDA-Public Use
  Company Number: US-GLAXOSMITHKLINE-A0603709A

PATIENT
  Age: 34 Year
  Sex: Female

DRUGS (3)
  1. EPZICOM [Suspect]
     Indication: HIV INFECTION
     Route: 048
  2. NORVIR [Concomitant]
     Indication: HIV INFECTION
     Route: 048
  3. REYATAZ [Concomitant]
     Indication: HIV INFECTION
     Route: 065

REACTIONS (3)
  - ABORTION SPONTANEOUS [None]
  - DRUG EXPOSURE DURING PREGNANCY [None]
  - PREGNANCY [None]
